FAERS Safety Report 6922228-9 (Version None)
Quarter: 2010Q3

REPORT INFORMATION
  Report Type: 
  Country: None (occurrence: None)
  Receive Date: 20100813
  Receipt Date: 20100810
  Transmission Date: 20110219
  Serious: Yes (Other)
  Sender: FDA-Public Use
  Company Number: US-ASTRAZENECA-2007UW27712

PATIENT
  Age: 50 Year
  Sex: Female
  Weight: 80.7 kg

DRUGS (23)
  1. SEROQUEL [Suspect]
     Indication: ANXIETY
     Dosage: 25MG, 200MG, 400MG
     Route: 048
     Dates: start: 20010220
  2. SEROQUEL [Suspect]
     Indication: DEPRESSION
     Dosage: 25MG, 200MG, 400MG
     Route: 048
     Dates: start: 20010220
  3. SEROQUEL [Suspect]
     Indication: SCHIZOAFFECTIVE DISORDER
     Dosage: 25MG, 200MG, 400MG
     Route: 048
     Dates: start: 20010220
  4. SEROQUEL [Suspect]
     Indication: SLEEP DISORDER
     Dosage: 25MG, 200MG, 400MG
     Route: 048
     Dates: start: 20010220
  5. SEROQUEL [Suspect]
     Indication: HALLUCINATION
     Dosage: 25MG, 200MG, 400MG
     Route: 048
     Dates: start: 20010220
  6. SEROQUEL [Suspect]
     Dosage: 100-600 MG
     Route: 048
     Dates: start: 20011011, end: 20061207
  7. SEROQUEL [Suspect]
     Dosage: 100-600 MG
     Route: 048
     Dates: start: 20011011, end: 20061207
  8. SEROQUEL [Suspect]
     Dosage: 100-600 MG
     Route: 048
     Dates: start: 20011011, end: 20061207
  9. SEROQUEL [Suspect]
     Dosage: 100-600 MG
     Route: 048
     Dates: start: 20011011, end: 20061207
  10. SEROQUEL [Suspect]
     Dosage: 100-600 MG
     Route: 048
     Dates: start: 20011011, end: 20061207
  11. SEROQUEL [Suspect]
     Dosage: 600MG TO 800MG
     Route: 048
     Dates: start: 20041007, end: 20061207
  12. SEROQUEL [Suspect]
     Dosage: 600MG TO 800MG
     Route: 048
     Dates: start: 20041007, end: 20061207
  13. SEROQUEL [Suspect]
     Dosage: 600MG TO 800MG
     Route: 048
     Dates: start: 20041007, end: 20061207
  14. SEROQUEL [Suspect]
     Dosage: 600MG TO 800MG
     Route: 048
     Dates: start: 20041007, end: 20061207
  15. SEROQUEL [Suspect]
     Dosage: 600MG TO 800MG
     Route: 048
     Dates: start: 20041007, end: 20061207
  16. SEROQUEL [Suspect]
     Route: 048
     Dates: start: 20060615, end: 20071001
  17. SEROQUEL [Suspect]
     Route: 048
     Dates: start: 20060615, end: 20071001
  18. SEROQUEL [Suspect]
     Route: 048
     Dates: start: 20060615, end: 20071001
  19. SEROQUEL [Suspect]
     Route: 048
     Dates: start: 20060615, end: 20071001
  20. SEROQUEL [Suspect]
     Route: 048
     Dates: start: 20060615, end: 20071001
  21. RISPERDAL [Concomitant]
     Indication: HALLUCINATION
     Dosage: 2MG , 4MG,  8 MG
     Dates: start: 20010101, end: 20040101
  22. ZYPREXA [Concomitant]
     Indication: HALLUCINATION
     Dates: start: 20020131
  23. GEODON [Concomitant]

REACTIONS (5)
  - DIABETES MELLITUS [None]
  - DIABETIC COMPLICATION [None]
  - DYSKINESIA [None]
  - JOINT INJURY [None]
  - TYPE 2 DIABETES MELLITUS [None]
